FAERS Safety Report 13125912 (Version 1)
Quarter: 2017Q1

REPORT INFORMATION
  Report Type: Spontaneous
  Country: US (occurrence: US)
  Receive Date: 20170118
  Receipt Date: 20170118
  Transmission Date: 20170428
  Serious: No
  Sender: FDA-Public Use
  Company Number: US-DEPOMED, INC.-US-2016DEP012724

PATIENT

DRUGS (6)
  1. NUCYNTA ER [Suspect]
     Active Substance: TAPENTADOL HYDROCHLORIDE
     Indication: PAIN
     Dosage: 150 MG, QD (AT BED TIME)
     Route: 048
     Dates: start: 201608, end: 201609
  2. NUCYNTA ER [Suspect]
     Active Substance: TAPENTADOL HYDROCHLORIDE
     Dosage: 150 MG, QD (AT BED TIME)
     Route: 048
     Dates: start: 201609, end: 20161018
  3. NUCYNTA ER [Suspect]
     Active Substance: TAPENTADOL HYDROCHLORIDE
     Dosage: 150 MG, QD (AT BED TIME)
     Route: 048
     Dates: start: 20161103
  4. NUCYNTA [Suspect]
     Active Substance: TAPENTADOL HYDROCHLORIDE
     Dosage: 100 MG, BID
     Route: 048
     Dates: start: 20161103
  5. NUCYNTA [Suspect]
     Active Substance: TAPENTADOL HYDROCHLORIDE
     Dosage: 100 MG, BID
     Route: 048
     Dates: start: 201609, end: 20161018
  6. NUCYNTA [Suspect]
     Active Substance: TAPENTADOL HYDROCHLORIDE
     Indication: PAIN
     Dosage: 100 MG, BID
     Route: 048
     Dates: start: 201608, end: 201609

REACTIONS (3)
  - Product use issue [Not Recovered/Not Resolved]
  - Drug effect decreased [Not Recovered/Not Resolved]
  - Medication error [Not Recovered/Not Resolved]

NARRATIVE: CASE EVENT DATE: 201608
